FAERS Safety Report 6822178-2 (Version None)
Quarter: 2010Q3

REPORT INFORMATION
  Report Type: 
  Country: None (occurrence: None)
  Receive Date: 20100707
  Receipt Date: 20100707
  Transmission Date: 20110219
  Serious: Yes (Hospitalization)
  Sender: FDA-Public Use
  Company Number: None

PATIENT
  Age: 34 Year
  Sex: Female
  Weight: 56.6996 kg

DRUGS (2)
  1. YAZ [Suspect]
     Indication: CONTRACEPTION
     Dosage: 1 PILL 1 TIME A DAY PO
     Route: 048
     Dates: start: 20010101, end: 20030101
  2. YASMIN [Suspect]
     Indication: MENSTRUAL CYCLE MANAGEMENT
     Dosage: 1 PILL 1 TIME A DAY PO
     Route: 048
     Dates: start: 20050101, end: 20070101

REACTIONS (1)
  - CHOLECYSTECTOMY [None]
